FAERS Safety Report 23018178 (Version 2)
Quarter: 2023Q4

REPORT INFORMATION
  Report Type: Spontaneous
  Country: ES (occurrence: ES)
  Receive Date: 20231003
  Receipt Date: 20231024
  Transmission Date: 20240110
  Serious: Yes (Other)
  Sender: FDA-Public Use
  Company Number: None

PATIENT
  Sex: Female

DRUGS (2)
  1. RILPIVIRINE [Suspect]
     Active Substance: RILPIVIRINE
     Indication: HIV infection
     Dosage: 900 MG, TOTAL (1 VIAL EVERY 2 MONTHS)
     Route: 030
     Dates: start: 20230816, end: 20230816
  2. VOCABRIA [Suspect]
     Active Substance: CABOTEGRAVIR SODIUM
     Indication: HIV test positive
     Dosage: 600 MG, TOTAL (1 INJECTION EVERY 2 MONTHS)
     Route: 030
     Dates: start: 20230816, end: 20230816

REACTIONS (3)
  - Suicidal ideation [Recovered/Resolved]
  - Pain [Recovering/Resolving]
  - Depression [Recovering/Resolving]

NARRATIVE: CASE EVENT DATE: 20230817
